FAERS Safety Report 9496414 (Version 1)
Quarter: 2013Q3

REPORT INFORMATION
  Report Type: Spontaneous
  Country: HR (occurrence: HR)
  Receive Date: 20130904
  Receipt Date: 20130904
  Transmission Date: 20140515
  Serious: Yes (Death, Other)
  Sender: FDA-Public Use
  Company Number: PHHY2013HR089240

PATIENT
  Age: 35 Year
  Sex: Male

DRUGS (4)
  1. 5-FLUOROURACIL [Suspect]
     Dosage: 800 MG, BOLUS
  2. 5-FLUOROURACIL [Suspect]
     Dosage: 4.8 G PER 46 HOURS
  3. IRINOTECAN [Concomitant]
     Dosage: 360 MG, UNK
  4. FOLINIC ACID [Concomitant]
     Dosage: 800 MG

REACTIONS (10)
  - Toxicity to various agents [Fatal]
  - Cardiac arrest [Fatal]
  - Hypotension [Fatal]
  - Hypoxia [Fatal]
  - Gastrointestinal inflammation [Unknown]
  - Stomatitis [Unknown]
  - Thrombocytopenia [Unknown]
  - Leukopenia [Unknown]
  - Tachycardia [Unknown]
  - Arrhythmia [Unknown]
